FAERS Safety Report 26130630 (Version 1)
Quarter: 2025Q4

REPORT INFORMATION
  Report Type: Spontaneous
  Country: EU (occurrence: EU)
  Receive Date: 20251208
  Receipt Date: 20251208
  Transmission Date: 20260117
  Serious: Yes (Other)
  Sender: TEVA
  Company Number: None

PATIENT
  Age: 68 Year
  Sex: Male
  Weight: 99.7 kg

DRUGS (3)
  1. CLOPIDOGREL [Interacting]
     Active Substance: CLOPIDOGREL BISULFATE
     Indication: Vascular device user
     Dosage: CLOPIDOGREL (7300A)
     Route: 048
     Dates: start: 20250707, end: 20250716
  2. ENOXAPARIN SODIUM [Interacting]
     Active Substance: ENOXAPARIN SODIUM
     Indication: Prophylaxis
     Dosage: CLEXANE 4,000 IU (40 MG)/0.4 ML 2 PRE-FILLED SYRINGES OF 0.4 ML
     Route: 058
     Dates: start: 20250708, end: 20250717
  3. ASPIRIN [Interacting]
     Active Substance: ASPIRIN
     Indication: Vascular device user
     Route: 048
     Dates: start: 20250707

REACTIONS (1)
  - Post procedural haemorrhage [Recovering/Resolving]

NARRATIVE: CASE EVENT DATE: 20250716
